FAERS Safety Report 25072350 (Version 1)
Quarter: 2025Q1

REPORT INFORMATION
  Report Type: Spontaneous
  Country: EG (occurrence: EG)
  Receive Date: 20250313
  Receipt Date: 20250313
  Transmission Date: 20250408
  Serious: Yes (Death, Other)
  Sender: BRISTOL-MYERS SQUIBB COMPANY
  Company Number: EG-BRISTOL-MYERS SQUIBB COMPANY-2025-033091

PATIENT
  Age: 38 Year
  Sex: Female

DRUGS (1)
  1. REBLOZYL [Suspect]
     Active Substance: LUSPATERCEPT-AAMT
     Indication: Thalassaemia beta
     Dosage: 1 MG/KG
     Route: 058
     Dates: start: 20240925, end: 20250101

REACTIONS (1)
  - Coma hepatic [Fatal]
